FAERS Safety Report 12922599 (Version 1)
Quarter: 2016Q4

REPORT INFORMATION
  Report Type: Spontaneous
  Country: US (occurrence: US)
  Receive Date: 20161108
  Receipt Date: 20161108
  Transmission Date: 20170207
  Serious: Yes (Life-Threatening, Disabling)
  Sender: FDA-Public Use
  Company Number: None

PATIENT
  Age: 62 Year
  Sex: Male
  Weight: 90 kg

DRUGS (3)
  1. FLUTICASONE PROPIONATE. [Suspect]
     Active Substance: FLUTICASONE PROPIONATE
     Indication: NASAL POLYPS
     Dosage: ?          OTHER ROUTE:NASAL SPRAY?
     Route: 045
  2. AMOXICILLIN. [Concomitant]
     Active Substance: AMOXICILLIN
  3. VITAMIN (MULTI) [Concomitant]

REACTIONS (2)
  - Tremor [None]
  - Parkinson^s disease [None]

NARRATIVE: CASE EVENT DATE: 20161101
